FAERS Safety Report 7429934-0 (Version None)
Quarter: 2011Q2

REPORT INFORMATION
  Report Type: 
  Country: None (occurrence: None)
  Receive Date: 20110421
  Receipt Date: 20110419
  Transmission Date: 20111010
  Serious: Yes (Hospitalization)
  Sender: FDA-Public Use
  Company Number: US-B.I. PHARMACEUTICALS,INC./RIDGEFIELD-2011-BP-08945BP

PATIENT
  Sex: Female

DRUGS (1)
  1. PRADAXA [Suspect]
     Indication: ATRIAL FIBRILLATION
     Dosage: 75 MG
     Dates: start: 20110402, end: 20110405

REACTIONS (4)
  - LOWER GASTROINTESTINAL HAEMORRHAGE [None]
  - POLYP [None]
  - HAEMORRHOIDS [None]
  - DIVERTICULUM [None]
